FAERS Safety Report 20867722 (Version 2)
Quarter: 2022Q2

REPORT INFORMATION
  Report Type: Spontaneous
  Country: GB (occurrence: None)
  Receive Date: 20220524
  Receipt Date: 20220603
  Transmission Date: 20220720
  Serious: Yes (Death, Hospitalization)
  Sender: FDA-Public Use
  Company Number: 2022A191623

PATIENT
  Age: 18 Year
  Sex: Female
  Weight: 42 kg

DRUGS (2)
  1. BENRALIZUMAB [Suspect]
     Active Substance: BENRALIZUMAB
     Indication: Adverse drug reaction
     Dosage: 4WEEKS;
     Route: 058
     Dates: start: 20220404
  2. BENRALIZUMAB [Suspect]
     Active Substance: BENRALIZUMAB
     Indication: Adverse drug reaction
     Dosage: 4WEEKS;
     Route: 058
     Dates: start: 20220429

REACTIONS (6)
  - Pain in extremity [Unknown]
  - Asthma [Fatal]
  - Peripheral swelling [Unknown]
  - Dyspnoea [Unknown]
  - Cardiac arrest [Unknown]
  - Medication error [Fatal]

NARRATIVE: CASE EVENT DATE: 20220429
